FAERS Safety Report 10684974 (Version 1)
Quarter: 2014Q4

REPORT INFORMATION
  Report Type: Spontaneous
  Country: CN (occurrence: None)
  Receive Date: 20141229
  Receipt Date: 20141229
  Transmission Date: 20150529
  Serious: Yes (Other)
  Sender: FDA-Public Use
  Company Number: 2014CDR00004

PATIENT
  Age: 32 Year
  Sex: Female

DRUGS (1)
  1. METHIMAZOLE. [Suspect]
     Active Substance: METHIMAZOLE
     Indication: BASEDOW^S DISEASE

REACTIONS (9)
  - Goitre [None]
  - Agranulocytosis [None]
  - Plasmacytosis [None]
  - Oropharyngeal pain [None]
  - Anaemia [None]
  - Pyrexia [None]
  - Staphylococcal infection [None]
  - Bone marrow toxicity [None]
  - Tonsillar hypertrophy [None]
